FAERS Safety Report 7895742-X (Version None)
Quarter: 2011Q4

REPORT INFORMATION
  Report Type: 
  Country: None (occurrence: None)
  Receive Date: 20111104
  Receipt Date: 20111104
  Transmission Date: 20120403
  Serious: Yes (Hospitalization)
  Sender: FDA-Public Use
  Company Number: None

PATIENT
  Sex: Female
  Weight: 61 kg

DRUGS (3)
  1. CARBOPLATIN [Suspect]
     Dosage: 480 MG
  2. BEVACIZUMAB (RHUMAB VEGF) [Suspect]
     Dosage: 930 MG
  3. TAXOL [Suspect]
     Dosage: 320 MG

REACTIONS (6)
  - HYPOXIA [None]
  - CHEST PAIN [None]
  - DYSPNOEA [None]
  - HAEMOPTYSIS [None]
  - PLEURAL EFFUSION [None]
  - PULMONARY HAEMORRHAGE [None]
